FAERS Safety Report 7423432-6 (Version None)
Quarter: 2011Q2

REPORT INFORMATION
  Report Type: 
  Country: None (occurrence: None)
  Receive Date: 20110419
  Receipt Date: 20110407
  Transmission Date: 20111010
  Serious: Yes (Death, Hospitalization)
  Sender: FDA-Public Use
  Company Number: US-ACTELION-A-NJ2011-45773

PATIENT

DRUGS (2)
  1. TRACLEER [Suspect]
     Indication: PULMONARY ARTERIAL HYPERTENSION
     Dosage: UNK
     Route: 048
     Dates: start: 20100313
  2. PLAVIX [Concomitant]

REACTIONS (4)
  - DEATH [None]
  - DYSPNOEA [None]
  - DEEP VEIN THROMBOSIS [None]
  - OXYGEN SATURATION DECREASED [None]
